FAERS Safety Report 8811717 (Version 1)
Quarter: 2012Q4

REPORT INFORMATION
  Report Type: Spontaneous
  Country: FR (occurrence: None)
  Receive Date: 20120924
  Receipt Date: 20120924
  Transmission Date: 20130627
  Serious: Yes (Other)
  Sender: FDA-Public Use
  Company Number: FR-SEPTODONT-200600141

PATIENT
  Age: 32 Year
  Sex: Male

DRUGS (2)
  1. SEPTOCAINE AND EPINEPHRINE [Suspect]
     Dosage: 2 cartridges Dental
     Route: 004
     Dates: start: 20060824, end: 20060824
  2. AMBROXOL [Suspect]
     Route: 061
     Dates: start: 20060824, end: 20060824

REACTIONS (4)
  - Aspartate aminotransferase increased [None]
  - Alanine aminotransferase increased [None]
  - Blood bilirubin increased [None]
  - Bilirubin conjugated increased [None]
